FAERS Safety Report 6762190-5 (Version None)
Quarter: 2010Q2

REPORT INFORMATION
  Report Type: 
  Country: None (occurrence: None)
  Receive Date: 20100609
  Receipt Date: 20100426
  Transmission Date: 20101027
  Serious: No
  Sender: FDA-Public Use
  Company Number: US-KINGPHARMUSA00001-K201000497

PATIENT
  Sex: Male
  Weight: 95.238 kg

DRUGS (2)
  1. EMBEDA [Suspect]
     Indication: NECK PAIN
     Dosage: 30 MG, BID
     Route: 048
     Dates: start: 20100423, end: 20100426
  2. EMBEDA [Suspect]
     Indication: SPINAL FUSION SURGERY

REACTIONS (6)
  - ABDOMINAL DISCOMFORT [None]
  - ANXIETY [None]
  - FLUSHING [None]
  - HEADACHE [None]
  - INSOMNIA [None]
  - MIGRAINE [None]
